FAERS Safety Report 7541611-4 (Version None)
Quarter: 2011Q2

REPORT INFORMATION
  Report Type: 
  Country: None (occurrence: None)
  Receive Date: 20110613
  Receipt Date: 20100505
  Transmission Date: 20111010
  Serious: Yes (Other)
  Sender: FDA-Public Use
  Company Number: US-JNJFOC-20110602629

PATIENT
  Age: 4 Year
  Sex: Female

DRUGS (2)
  1. CHILDREN'S TYLENOL SUSPENSION [Suspect]
     Route: 065
  2. CHILDREN'S TYLENOL SUSPENSION [Suspect]
     Indication: MALAISE
     Route: 065

REACTIONS (2)
  - PRODUCT QUALITY ISSUE [None]
  - PNEUMONIA [None]
